FAERS Safety Report 9516644 (Version 1)
Quarter: 2013Q3

REPORT INFORMATION
  Report Type: Report from Study
  Country: IS (occurrence: IS)
  Receive Date: 20130911
  Receipt Date: 20130911
  Transmission Date: 20140515
  Serious: Yes (Other)
  Sender: FDA-Public Use
  Company Number: IS-GLAXOSMITHKLINE-B0921430A

PATIENT
  Age: 43 Year
  Sex: Male

DRUGS (5)
  1. DABRAFENIB [Suspect]
     Indication: METASTATIC MALIGNANT MELANOMA
     Dosage: 150MG TWICE PER DAY
     Route: 048
     Dates: start: 20130416
  2. PREDNISOLON [Concomitant]
  3. PARKODIN FORTE [Concomitant]
  4. ATARAX [Concomitant]
  5. IMOVANE [Concomitant]

REACTIONS (4)
  - Respiratory tract infection [Recovered/Resolved]
  - Pain in extremity [Unknown]
  - Nodule [Unknown]
  - Rash [Unknown]
